FAERS Safety Report 19269701 (Version 1)
Quarter: 2021Q2

REPORT INFORMATION
  Report Type: Spontaneous
  Country: US (occurrence: US)
  Receive Date: 20210518
  Receipt Date: 20210518
  Transmission Date: 20210717
  Serious: Yes (Other)
  Sender: FDA-Public Use
  Company Number: US-UPSHER-SMITH LABORATORIES, LLC-2021USL00383

PATIENT

DRUGS (1)
  1. VIGABATRIN. [Suspect]
     Active Substance: VIGABATRIN

REACTIONS (1)
  - Hepatic failure [Unknown]
